FAERS Safety Report 9905433 (Version 2)
Quarter: 2014Q2

REPORT INFORMATION
  Report Type: Spontaneous
  Country: IT (occurrence: IT)
  Receive Date: 20140218
  Receipt Date: 20140527
  Transmission Date: 20141212
  Serious: Yes (Hospitalization)
  Sender: FDA-Public Use
  Company Number: IT-B.I. PHARMACEUTICALS,INC./RIDGEFIELD-2014-BI-06477IT

PATIENT
  Age: 83 Year
  Sex: Male
  Weight: 56 kg

DRUGS (8)
  1. PRADAXA [Suspect]
     Indication: ATRIAL FIBRILLATION
     Route: 048
     Dates: start: 20130901, end: 20131005
  2. RABEPRAZOLE SODIUM [Concomitant]
     Route: 048
  3. GAVISCON ADVANCE [Concomitant]
     Route: 065
  4. PLASIL [Concomitant]
     Route: 048
  5. MOVICOL [Concomitant]
     Route: 065
  6. TAMSULOSIN HYDROCHLORIDE [Concomitant]
     Route: 065
  7. METOPROLOL [Concomitant]
     Route: 065
  8. FOLINA [Concomitant]
     Route: 065

REACTIONS (2)
  - Weight decreased [Recovered/Resolved]
  - Diarrhoea [Recovered/Resolved]
